FAERS Safety Report 15983135 (Version 2)
Quarter: 2019Q1

REPORT INFORMATION
  Report Type: Spontaneous
  Country: US (occurrence: US)
  Receive Date: 20190220
  Receipt Date: 20190304
  Transmission Date: 20190418
  Serious: No
  Sender: FDA-Public Use
  Company Number: US-009507513-1902USA006266

PATIENT
  Sex: Female

DRUGS (1)
  1. NEXPLANON [Suspect]
     Active Substance: ETONOGESTREL
     Dosage: 1 IMPLANT
     Route: 059
     Dates: start: 201901

REACTIONS (3)
  - No adverse event [Unknown]
  - Device difficult to use [Unknown]
  - Product quality issue [Unknown]

NARRATIVE: CASE EVENT DATE: 201901
